FAERS Safety Report 9645357 (Version 1)
Quarter: 2013Q4

REPORT INFORMATION
  Report Type: Spontaneous
  Country: FR (occurrence: None)
  Receive Date: 20131023
  Receipt Date: 20131023
  Transmission Date: 20140711
  Serious: Yes (Life-Threatening)
  Sender: FDA-Public Use
  Company Number: 2013CP000120

PATIENT
  Age: 52 Year
  Sex: Female

DRUGS (1)
  1. PERFALGAN [Suspect]
     Indication: PRODUCT USED FOR UNKNOWN INDICATION
     Route: 042

REACTIONS (4)
  - Hepatitis fulminant [None]
  - Hepatomegaly [None]
  - Anaemia [None]
  - Prothrombin time shortened [None]
